FAERS Safety Report 15681725 (Version 1)
Quarter: 2018Q4

REPORT INFORMATION
  Report Type: Spontaneous
  Country: CA (occurrence: CA)
  Receive Date: 20181203
  Receipt Date: 20181203
  Transmission Date: 20190205
  Serious: Yes (Other)
  Sender: FDA-Public Use
  Company Number: CA-CELLTRION INC.-2018CA021295

PATIENT

DRUGS (7)
  1. INFLECTRA [Suspect]
     Active Substance: INFLIXIMAB-DYYB
     Indication: CROHN^S DISEASE
     Dosage: 5 MG, CYCLIC (Q0,2,6 WEEKS,THEN EVERY 8 WEEKS)
     Route: 042
     Dates: start: 20180126
  2. INFLECTRA [Suspect]
     Active Substance: INFLIXIMAB-DYYB
     Dosage: 5 MG, CYCLIC (Q0,2,6 WEEKS,THEN EVERY 8 WEEKS)
     Route: 042
     Dates: start: 20180629
  3. PREDNISONE. [Concomitant]
     Active Substance: PREDNISONE
     Dosage: UNK
  4. LOSEC [Concomitant]
     Active Substance: OMEPRAZOLE
     Dosage: UNK
  5. CALCIUM [Concomitant]
     Active Substance: CALCIUM
     Dosage: UNK
  6. INFLECTRA [Suspect]
     Active Substance: INFLIXIMAB-DYYB
     Dosage: 5 MG, CYCLIC (Q0,2,6 WEEKS,THEN EVERY 8 WEEKS)
     Route: 042
     Dates: start: 20180504
  7. INFLECTRA [Suspect]
     Active Substance: INFLIXIMAB-DYYB
     Dosage: 5 MG, CYCLIC (Q0,2,6 WEEKS,THEN EVERY 8 WEEKS)
     Route: 042
     Dates: start: 20180629

REACTIONS (5)
  - Haematochezia [Unknown]
  - Intentional dose omission [Unknown]
  - Condition aggravated [Unknown]
  - Blood pressure fluctuation [Unknown]
  - Depressed mood [Unknown]

NARRATIVE: CASE EVENT DATE: 20180629
